FAERS Safety Report 12993515 (Version 1)
Quarter: 2016Q4

REPORT INFORMATION
  Report Type: Spontaneous
  Country: US (occurrence: US)
  Receive Date: 20161202
  Receipt Date: 20161202
  Transmission Date: 20170207
  Serious: No
  Sender: FDA-Public Use
  Company Number: None

PATIENT
  Age: 39 Year
  Sex: Male
  Weight: 61.29 kg

DRUGS (3)
  1. OMEPRAZOLE. [Concomitant]
     Active Substance: OMEPRAZOLE
  2. TAMSULOSIN HCL [Concomitant]
     Active Substance: TAMSULOSIN
  3. FINASTERIDE 5MG TABLET USP DR REDDYS LABORATORIES LIMITED [Suspect]
     Active Substance: FINASTERIDE
     Indication: PROSTATOMEGALY
     Dosage: 1 PILL 1 DAILY, MOUTH
     Route: 048
     Dates: start: 201602, end: 201610

REACTIONS (2)
  - Breast tenderness [None]
  - Breast mass [None]

NARRATIVE: CASE EVENT DATE: 201610
